FAERS Safety Report 7717235-2 (Version None)
Quarter: 2011Q3

REPORT INFORMATION
  Report Type: 
  Country: None (occurrence: None)
  Receive Date: 20110826
  Receipt Date: 20110826
  Transmission Date: 20111222
  Serious: Yes (Hospitalization)
  Sender: FDA-Public Use
  Company Number: None

PATIENT
  Sex: Male
  Weight: 97.52 kg

DRUGS (3)
  1. BEVACIZUMAB (RHUMAB VEGF) [Suspect]
     Dosage: 1463 MG
  2. TAXOL [Suspect]
     Dosage: 417 MG
  3. CARBOPLATIN [Suspect]
     Dosage: 900 MG

REACTIONS (7)
  - NEUTROPHIL COUNT DECREASED [None]
  - HYPOXIA [None]
  - DYSPNOEA [None]
  - DIARRHOEA [None]
  - COUGH [None]
  - PYREXIA [None]
  - HAEMOGLOBIN DECREASED [None]
